FAERS Safety Report 6753555-6 (Version None)
Quarter: 2010Q2

REPORT INFORMATION
  Report Type: 
  Country: None (occurrence: None)
  Receive Date: 20100603
  Receipt Date: 20100531
  Transmission Date: 20101027
  Serious: Yes (Death, Hospitalization)
  Sender: FDA-Public Use
  Company Number: FR-ASTRAZENECA-2010SE24953

PATIENT
  Age: 83 Year
  Sex: Male

DRUGS (11)
  1. XYLOCAINE [Suspect]
     Indication: PAIN
     Dates: start: 20100226, end: 20100305
  2. COLCHIMAX [Suspect]
     Indication: GOUT
     Route: 048
     Dates: start: 20100226, end: 20100305
  3. PROFENID [Suspect]
     Indication: SCIATICA
     Route: 048
     Dates: start: 20100226, end: 20100305
  4. ASPIRINE [Suspect]
     Indication: SCIATICA
     Route: 048
     Dates: start: 20100226, end: 20100305
  5. MOPRAL [Concomitant]
  6. DAKTARIN [Concomitant]
  7. TRIFLUCAN [Concomitant]
  8. KARDEGIC [Concomitant]
  9. LIPANTHYL [Concomitant]
  10. IRBESARTAN [Concomitant]
  11. ZOLPIDEM [Concomitant]

REACTIONS (1)
  - THROMBOCYTOPENIA [None]
